FAERS Safety Report 21146962 (Version 1)
Quarter: 2022Q3

REPORT INFORMATION
  Report Type: Spontaneous
  Country: ES (occurrence: ES)
  Receive Date: 20220729
  Receipt Date: 20220729
  Transmission Date: 20221027
  Serious: Yes (Life-Threatening, Hospitalization, Other)
  Sender: FDA-Public Use
  Company Number: None

PATIENT
  Age: 67 Year
  Sex: Female

DRUGS (2)
  1. GEMCITABINE [Interacting]
     Active Substance: GEMCITABINE
     Indication: Adenocarcinoma pancreas
     Dosage: 1000 MG 1 TIME PER WEEK, 1 VIAL?OF 10 ML
     Dates: start: 20220508
  2. ABRAXANE [Interacting]
     Active Substance: PACLITAXEL
     Indication: Adenocarcinoma pancreas
     Dosage: 100 MG 1 TIME A WEEK, 5 MG/ML, 1 VIAL
     Dates: start: 20220506

REACTIONS (2)
  - Agranulocytosis [Recovering/Resolving]
  - Drug interaction [Unknown]

NARRATIVE: CASE EVENT DATE: 20220508
